FAERS Safety Report 5090818-7 (Version None)
Quarter: 2006Q3

REPORT INFORMATION
  Report Type: 
  Country: None (occurrence: None)
  Receive Date: 20060823
  Receipt Date: 20060810
  Transmission Date: 20061208
  Serious: Yes (Hospitalization)
  Sender: FDA-Public Use
  Company Number: HQWYE338510AUG06

PATIENT
  Age: 44 Year
  Sex: Female

DRUGS (7)
  1. PANTOPRAZOLE SODIUM [Suspect]
     Indication: ARTHRITIS
     Dosage: 1 DOSAGE FORM 1X PER 1 DAY ORAL
     Route: 048
     Dates: start: 20060415, end: 20060708
  2. PANTOPRAZOLE SODIUM [Suspect]
     Indication: ARTHROPATHY
     Dosage: 1 DOSAGE FORM 1X PER 1 DAY ORAL
     Route: 048
     Dates: start: 20060415, end: 20060708
  3. COAPROVEL (IRBESARTAN/HYDROCHLOROTHIAZIDE,) [Suspect]
     Indication: ESSENTIAL HYPERTENSION
     Dosage: 1 DOSAGE FORM 1X PER 1 DAY ORAL
     Route: 048
     Dates: start: 20050101, end: 20060708
  4. INDOMETHACIN [Suspect]
     Indication: ARTHRITIS
     Dosage: 3 DOSAGE FORM 1X PER 1 DAY ORAL
     Route: 048
     Dates: start: 20060415, end: 20060708
  5. INDOMETHACIN [Suspect]
     Indication: ARTHROPATHY
     Dosage: 3 DOSAGE FORM 1X PER 1 DAY ORAL
     Route: 048
     Dates: start: 20060415, end: 20060708
  6. TRAMADOL HCL [Suspect]
     Indication: ARTHRITIS
     Dosage: 2 DOSAGE FORM 1X PER 1 DAY ORAL
     Route: 048
     Dates: start: 20060415, end: 20060708
  7. TRAMADOL HCL [Suspect]
     Indication: ARTHROPATHY
     Dosage: 2 DOSAGE FORM 1X PER 1 DAY ORAL
     Route: 048
     Dates: start: 20060415, end: 20060708

REACTIONS (6)
  - ANGIONEUROTIC OEDEMA [None]
  - CYTOLYTIC HEPATITIS [None]
  - DRUG HYPERSENSITIVITY [None]
  - EOSINOPHILIA [None]
  - HEPATITIS CHOLESTATIC [None]
  - HYPOTENSION [None]
